FAERS Safety Report 9271544 (Version 3)
Quarter: 2013Q3

REPORT INFORMATION
  Report Type: Spontaneous
  Country: US (occurrence: US)
  Receive Date: 20130506
  Receipt Date: 20130820
  Transmission Date: 20140515
  Serious: Yes (Death, Hospitalization, Other)
  Sender: FDA-Public Use
  Company Number: US-ASTELLAS-2013US004661

PATIENT
  Age: 50 Year
  Sex: Female

DRUGS (2)
  1. PROGRAF [Suspect]
     Indication: LIVER TRANSPLANT
     Dosage: 3 MG, UID/QD
     Route: 048
     Dates: start: 20041013, end: 20120717
  2. IMMUNOGLOBULINS NOS [Suspect]
     Indication: ANTIVIRAL TREATMENT
     Dosage: UNK
     Route: 065

REACTIONS (33)
  - Multi-organ failure [Fatal]
  - Coagulopathy [Fatal]
  - Gastrointestinal haemorrhage [Fatal]
  - Hepatic failure [Fatal]
  - Varices oesophageal [Unknown]
  - Splenomegaly [Unknown]
  - Lactic acidosis [Unknown]
  - Treatment noncompliance [Unknown]
  - General physical health deterioration [Unknown]
  - Humerus fracture [Unknown]
  - Joint dislocation [Unknown]
  - Peripheral nerve palsy [Unknown]
  - Lymphadenopathy mediastinal [Unknown]
  - Hepatic cirrhosis [Unknown]
  - Portal hypertension [Unknown]
  - Immune system disorder [Unknown]
  - Liver disorder [Unknown]
  - Lymphoproliferative disorder [Unknown]
  - Fall [Unknown]
  - Ascites [Unknown]
  - Encephalopathy [Unknown]
  - Hepatitis C [Unknown]
  - Thrombocytopenia [Unknown]
  - Sepsis [Unknown]
  - Lobar pneumonia [Unknown]
  - Bronchiolitis [Unknown]
  - Pleural effusion [Unknown]
  - Hepatocellular carcinoma [Unknown]
  - Hypotension [Unknown]
  - Renal failure [Unknown]
  - Palmar erythema [Unknown]
  - Cardiac murmur [Unknown]
  - Oedema peripheral [Unknown]
